FAERS Safety Report 8992192 (Version 1)
Quarter: 2012Q4

REPORT INFORMATION
  Report Type: Report from Study
  Country: US (occurrence: US)
  Receive Date: 20121231
  Receipt Date: 20121231
  Transmission Date: 20130627
  Serious: Yes (Hospitalization)
  Sender: FDA-Public Use
  Company Number: US-ROCHE-621019

PATIENT
  Age: 64 Year
  Sex: Female
  Weight: 71.4 kg

DRUGS (5)
  1. BORTEZOMIB [Suspect]
     Indication: MULTIPLE MYELOMA
     Route: 065
  2. ACYCLOVIR [Concomitant]
     Indication: PRODUCT USED FOR UNKNOWN INDICATION
     Route: 065
  3. ASA [Concomitant]
     Indication: PRODUCT USED FOR UNKNOWN INDICATION
     Route: 065
  4. VALTREX [Concomitant]
     Indication: PRODUCT USED FOR UNKNOWN INDICATION
     Route: 065
  5. BEVACIZUMAB [Suspect]
     Indication: MULTIPLE MYELOMA
     Dosage: 1065 MG, Q3W
     Route: 042

REACTIONS (3)
  - Dizziness [Unknown]
  - Apnoea [Unknown]
  - Dyspnoea [Recovered/Resolved]
